FAERS Safety Report 25834571 (Version 4)
Quarter: 2025Q4

REPORT INFORMATION
  Report Type: Spontaneous
  Country: US (occurrence: US)
  Receive Date: 20250923
  Receipt Date: 20251028
  Transmission Date: 20260118
  Serious: Yes (Other)
  Sender: BRISTOL-MYERS SQUIBB COMPANY
  Company Number: US-BRISTOL-MYERS SQUIBB COMPANY-2025-130152

PATIENT
  Age: 49 Year
  Sex: Male

DRUGS (4)
  1. ELIQUIS [Suspect]
     Active Substance: APIXABAN
     Indication: Product used for unknown indication
  2. LORBRENA [Suspect]
     Active Substance: LORLATINIB
     Indication: Small cell lung cancer
     Dates: start: 202501
  3. LORBRENA [Suspect]
     Active Substance: LORLATINIB
     Indication: Brain neoplasm
  4. LORBRENA [Suspect]
     Active Substance: LORLATINIB
     Indication: Non-small cell lung cancer

REACTIONS (7)
  - Mania [Not Recovered/Not Resolved]
  - Psychotic disorder [Unknown]
  - Cognitive disorder [Unknown]
  - Aphasia [Unknown]
  - Impaired work ability [Unknown]
  - Mental impairment [Unknown]
  - Depression [Unknown]

NARRATIVE: CASE EVENT DATE: 20250101
